FAERS Safety Report 8348017-9 (Version None)
Quarter: 2012Q2

REPORT INFORMATION
  Report Type: 
  Country: None (occurrence: None)
  Receive Date: 20120509
  Receipt Date: 20120427
  Transmission Date: 20120825
  Serious: Yes (Death, Life-Threatening, Hospitalization, Other)
  Sender: FDA-Public Use
  Company Number: PT-ACTELION-A-CH2012-65087

PATIENT
  Sex: Female
  Weight: 60 kg

DRUGS (13)
  1. TRACLEER [Suspect]
     Indication: DIGITAL ULCER
     Dosage: 62.5 MG, BID
     Route: 048
     Dates: start: 20090605, end: 20101122
  2. ACETYLSALICYLIC ACID SRT [Suspect]
     Dosage: UNK
     Dates: start: 20081015, end: 20101122
  3. NITROGLYCERIN [Concomitant]
     Indication: ISCHAEMIA
     Dosage: UNK
     Dates: start: 20070124, end: 20101122
  4. PENTOXIFYLLINE [Concomitant]
     Dosage: UNK
     Dates: start: 20080526, end: 20101122
  5. LEVOTHYROXINE SODIUM [Concomitant]
     Indication: HYPOTHYROIDISM
     Dosage: UNK
     Dates: start: 20060913, end: 20101122
  6. OMEPRAZOLE [Concomitant]
     Dosage: UNK
     Dates: start: 20090917, end: 20101122
  7. QUINAPRIL HYDROCHLORIDE [Concomitant]
     Indication: HYPERTENSION
     Dosage: UNK
     Dates: start: 20070418, end: 20101122
  8. NIFEDIPINE [Concomitant]
     Indication: ISCHAEMIA
     Dosage: UNK
     Dates: start: 20060913, end: 20101122
  9. MAGNESIUM CHLORIDE [Concomitant]
     Indication: HYPOMAGNESAEMIA
     Dosage: UNK
     Dates: start: 20090206, end: 20101122
  10. FUROSEMIDE [Concomitant]
     Indication: OEDEMA PERIPHERAL
     Dosage: UNK
     Dates: start: 20100826, end: 20101122
  11. METHOTREXATE [Concomitant]
     Indication: LOCALISED OEDEMA
     Dosage: UNK
     Dates: start: 20090917, end: 20101122
  12. FOLIC ACID [Concomitant]
     Dosage: UNK
     Dates: start: 20090917, end: 20101122
  13. METOLAZONE [Concomitant]
     Indication: DIURETIC THERAPY
     Dosage: UNK
     Dates: start: 20071114, end: 20101122

REACTIONS (6)
  - BRAIN DEATH [None]
  - HIATUS HERNIA [None]
  - HYPOVOLAEMIC SHOCK [None]
  - TRANSFUSION [None]
  - OESOPHAGEAL HAEMORRHAGE [None]
  - MECHANICAL VENTILATION [None]
